FAERS Safety Report 19815841 (Version 3)
Quarter: 2021Q4

REPORT INFORMATION
  Report Type: Other
  Country: US (occurrence: None)
  Receive Date: 20210910
  Receipt Date: 20211206
  Transmission Date: 20220303
  Serious: Yes (Hospitalization)
  Sender: FDA-Public Use
  Company Number: US-ROCHE-2904948

PATIENT
  Age: 8 Month
  Sex: Male
  Weight: 5.54 kg

DRUGS (2)
  1. EVRYSDI [Suspect]
     Active Substance: RISDIPLAM
     Indication: Spinal muscular atrophy
     Dosage: TAKE 1.5 ML (1.1 MG) BY FEEDING TUBE ONCE DAILY ;ONGOING: UNKNOWN
     Route: 048
     Dates: start: 20210813
  2. EVRYSDI [Suspect]
     Active Substance: RISDIPLAM
     Dosage: 60 MG/80 ML ORAL SOLUTION
     Route: 048

REACTIONS (5)
  - Pyrexia [Unknown]
  - Respiratory syncytial virus infection [Unknown]
  - Influenza [Unknown]
  - Alopecia [Unknown]
  - Respiratory tract infection viral [Unknown]

NARRATIVE: CASE EVENT DATE: 20211122
